FAERS Safety Report 6342915-3 (Version None)
Quarter: 2009Q3

REPORT INFORMATION
  Report Type: 
  Country: None (occurrence: None)
  Receive Date: 20090908
  Receipt Date: 20080222
  Transmission Date: 20100115
  Serious: Yes (Hospitalization)
  Sender: FDA-Public Use
  Company Number: IE-CELGENEUS-229-C5013-07081217

PATIENT
  Sex: Female

DRUGS (10)
  1. CC-5013 [Suspect]
     Indication: MULTIPLE MYELOMA
     Route: 048
     Dates: start: 20070511, end: 20070821
  2. CC-5013 [Suspect]
     Route: 048
     Dates: start: 20070913, end: 20071025
  3. DEXAMETHASONE [Suspect]
     Indication: MULTIPLE MYELOMA
     Route: 048
     Dates: start: 20070511, end: 20070806
  4. NEORECORMON [Suspect]
     Dosage: 30,000 IU
     Route: 058
     Dates: start: 20070821, end: 20070821
  5. NEORECORMON [Suspect]
     Route: 058
     Dates: start: 20070830
  6. LANSOPRAZOLE [Concomitant]
     Indication: DRUG USE FOR UNKNOWN INDICATION
     Route: 065
  7. MAXALAN [Concomitant]
     Indication: DRUG USE FOR UNKNOWN INDICATION
     Route: 065
  8. MYCOSTATIN [Concomitant]
     Indication: DRUG USE FOR UNKNOWN INDICATION
     Route: 065
  9. CORDOSYL [Concomitant]
     Indication: DRUG USE FOR UNKNOWN INDICATION
     Route: 065
  10. TRANSFUSION [Concomitant]
     Indication: DRUG USE FOR UNKNOWN INDICATION
     Dosage: 2 U
     Dates: start: 20070801, end: 20070801

REACTIONS (2)
  - ANAEMIA [None]
  - NEUTROPENIA [None]
